FAERS Safety Report 9291594 (Version 2)
Quarter: 2013Q2

REPORT INFORMATION
  Report Type: Spontaneous
  Country: JP (occurrence: JP)
  Receive Date: 20130515
  Receipt Date: 20130522
  Transmission Date: 20140414
  Serious: Yes (Hospitalization)
  Sender: FDA-Public Use
  Company Number: JP-GLAXOSMITHKLINE-B0891618A

PATIENT
  Age: 33 Year
  Sex: Male

DRUGS (3)
  1. MESALAZINE [Suspect]
     Indication: CROHN^S DISEASE
     Route: 065
  2. RANITIDINE [Suspect]
     Indication: CROHN^S DISEASE
     Route: 065
  3. INFLIXIMAB [Concomitant]
     Indication: CROHN^S DISEASE
     Dates: start: 2007

REACTIONS (7)
  - Tubulointerstitial nephritis [Recovered/Resolved]
  - Renal failure [Unknown]
  - Blood creatinine increased [Unknown]
  - Inflammation [Unknown]
  - Anaemia [Unknown]
  - Proteinuria [Unknown]
  - Haematuria [Unknown]
